FAERS Safety Report 16457830 (Version 1)
Quarter: 2019Q2

REPORT INFORMATION
  Report Type: Spontaneous
  Country: US (occurrence: US)
  Receive Date: 20190510
  Receipt Date: 20190510
  Transmission Date: 20190711
  Serious: Yes (Hospitalization)
  Sender: FDA-Public Use
  Company Number: None

PATIENT
  Age: 41 Year
  Sex: Male
  Weight: 97.7 kg

DRUGS (17)
  1. IRON SULFARU [Concomitant]
  2. PANTOPRAZOLE 40 MG [Concomitant]
     Active Substance: PANTOPRAZOLE SODIUM
  3. GABAPENTIN 300 MG [Concomitant]
     Active Substance: GABAPENTIN
  4. ZOLOFT [Concomitant]
     Active Substance: SERTRALINE HYDROCHLORIDE
  5. TRAMAOL 50MG [Concomitant]
  6. AMLTRIPTYLINE 50MG [Concomitant]
  7. ZOFTAN P.R.N [Concomitant]
  8. HYDROXYZINE P.R.N. [Concomitant]
  9. MIDODRINE 10 MG [Concomitant]
  10. SEPTRA SINGLE STRENGTH [Concomitant]
  11. SOVALDI [Suspect]
     Active Substance: SOFOSBUVIR
     Route: 048
     Dates: start: 20170410, end: 20170703
  12. VITAMIN D 50,000 UNITS WEEKLY [Concomitant]
  13. MAGNESIUM PLUS PROTEIN [Concomitant]
  14. PROGRAF 4MG [Concomitant]
  15. DAKLINZA [Suspect]
     Active Substance: DACLATASVIR
     Route: 048
     Dates: start: 20170410, end: 20170701
  16. ASPIRIN 0 [Concomitant]
  17. MULTIVITAMIN [Concomitant]
     Active Substance: VITAMINS

REACTIONS (3)
  - Abdominal distension [None]
  - Hepatitis C [None]
  - Pneumonia [None]

NARRATIVE: CASE EVENT DATE: 20170719
